FAERS Safety Report 25557606 (Version 1)
Quarter: 2025Q3

REPORT INFORMATION
  Report Type: Spontaneous
  Country: US (occurrence: US)
  Receive Date: 20250715
  Receipt Date: 20250715
  Transmission Date: 20251020
  Serious: Yes (Death, Life-Threatening)
  Sender: MYLAN
  Company Number: US-MYLANLABS-2025M1058107

PATIENT
  Age: 55 Year
  Sex: Male

DRUGS (12)
  1. MYCOPHENOLATE MOFETIL [Suspect]
     Active Substance: MYCOPHENOLATE MOFETIL
     Indication: Immunosuppressant drug therapy
  2. MYCOPHENOLATE MOFETIL [Suspect]
     Active Substance: MYCOPHENOLATE MOFETIL
     Route: 065
  3. MYCOPHENOLATE MOFETIL [Suspect]
     Active Substance: MYCOPHENOLATE MOFETIL
     Route: 065
  4. MYCOPHENOLATE MOFETIL [Suspect]
     Active Substance: MYCOPHENOLATE MOFETIL
  5. TACROLIMUS [Suspect]
     Active Substance: TACROLIMUS
     Indication: Immunosuppressant drug therapy
  6. TACROLIMUS [Suspect]
     Active Substance: TACROLIMUS
     Route: 065
  7. TACROLIMUS [Suspect]
     Active Substance: TACROLIMUS
     Route: 065
  8. TACROLIMUS [Suspect]
     Active Substance: TACROLIMUS
  9. PREDNISONE [Suspect]
     Active Substance: PREDNISONE
     Indication: Immunosuppressant drug therapy
  10. PREDNISONE [Suspect]
     Active Substance: PREDNISONE
     Route: 065
  11. PREDNISONE [Suspect]
     Active Substance: PREDNISONE
     Route: 065
  12. PREDNISONE [Suspect]
     Active Substance: PREDNISONE

REACTIONS (5)
  - Pneumonia [Fatal]
  - Cytomegalovirus infection [Recovering/Resolving]
  - Herpes simplex [Recovering/Resolving]
  - Genital ulceration [Recovering/Resolving]
  - Penile ulceration [Recovering/Resolving]
